FAERS Safety Report 9170743 (Version 1)
Quarter: 2013Q1

REPORT INFORMATION
  Report Type: Spontaneous
  Country: US (occurrence: None)
  Receive Date: 20130308
  Receipt Date: 20130308
  Transmission Date: 20140127
  Serious: Yes (Other)
  Sender: FDA-Public Use
  Company Number: 1624136

PATIENT
  Age: 28 Year
  Sex: Male

DRUGS (1)
  1. KETAMINE HYDROCHLORIDE [Suspect]
     Indication: SEDATION
     Dosage: INTRAMUSCLAR

REACTIONS (2)
  - Hypoxia [None]
  - Laryngospasm [None]
